FAERS Safety Report 13445345 (Version 1)
Quarter: 2017Q2

REPORT INFORMATION
  Report Type: Spontaneous
  Country: FR (occurrence: FR)
  Receive Date: 20170414
  Receipt Date: 20170414
  Transmission Date: 20170830
  Serious: Yes (Life-Threatening)
  Sender: FDA-Public Use
  Company Number: PHHY2017FR057083

PATIENT
  Age: 85 Year
  Sex: Male

DRUGS (3)
  1. FLUINDIONE [Concomitant]
     Active Substance: FLUINDIONE
     Indication: PRODUCT USED FOR UNKNOWN INDICATION
     Route: 065
  2. ENTRESTO [Suspect]
     Active Substance: SACUBITRIL\VALSARTAN
     Indication: PRODUCT USED FOR UNKNOWN INDICATION
     Dosage: 50 MG, BID
     Route: 048
     Dates: start: 20170125, end: 20170210
  3. LASILIX SPECIAL [Concomitant]
     Active Substance: FUROSEMIDE
     Indication: PRODUCT USED FOR UNKNOWN INDICATION
     Dosage: 500 MG, UNK
     Route: 065
     Dates: end: 20170210

REACTIONS (2)
  - Cardiogenic shock [Recovering/Resolving]
  - Dehydration [Recovered/Resolved]

NARRATIVE: CASE EVENT DATE: 20170210
